FAERS Safety Report 6802857-3 (Version None)
Quarter: 2010Q2

REPORT INFORMATION
  Report Type: 
  Country: None (occurrence: None)
  Receive Date: 20100628
  Receipt Date: 20100615
  Transmission Date: 20101027
  Serious: Yes (Hospitalization, Other)
  Sender: FDA-Public Use
  Company Number: US-BAYER-201012586NA

PATIENT
  Age: 31 Year
  Sex: Female
  Weight: 61 kg

DRUGS (5)
  1. YAZ [Suspect]
     Indication: CONTRACEPTION
     Route: 048
     Dates: start: 20021201, end: 20091201
  2. YASMIN [Suspect]
     Indication: CONTRACEPTION
     Route: 048
     Dates: start: 20021201, end: 20091201
  3. LOESTRIN 1.5/30 [Concomitant]
     Indication: CONTRACEPTION
  4. LEVAQUIN [Concomitant]
     Dates: start: 20000101
  5. NSAID'S [Concomitant]
     Dates: start: 20000101

REACTIONS (1)
  - CHOLELITHIASIS [None]
